FAERS Safety Report 22226198 (Version 1)
Quarter: 2023Q2

REPORT INFORMATION
  Report Type: Spontaneous
  Country: IT (occurrence: IT)
  Receive Date: 20230419
  Receipt Date: 20230419
  Transmission Date: 20230722
  Serious: Yes (Hospitalization)
  Sender: FDA-Public Use
  Company Number: None

PATIENT
  Age: 81 Year
  Sex: Male

DRUGS (9)
  1. XARELTO [Suspect]
     Active Substance: RIVAROXABAN
     Indication: Anticoagulant therapy
     Dosage: 5 MG, QD
     Route: 048
     Dates: start: 20180301, end: 20230315
  2. ASPIRIN [Suspect]
     Active Substance: ASPIRIN
     Indication: Antiplatelet therapy
     Dosage: 100 MG, QD
     Route: 048
     Dates: start: 20180301, end: 20230315
  3. BISOPROLOL [Concomitant]
     Active Substance: BISOPROLOL
  4. REPAGLINIDE AUROBINDO [Concomitant]
  5. MANIDIPINE [Concomitant]
     Active Substance: MANIDIPINE
  6. PANTOPRAZOLE SODIUM [Concomitant]
     Active Substance: PANTOPRAZOLE SODIUM
  7. REPAGLINIDE EG [Concomitant]
  8. HYDROCHLOROTHIAZIDE\OLMESARTAN MEDOXOMIL [Concomitant]
     Active Substance: HYDROCHLOROTHIAZIDE\OLMESARTAN MEDOXOMIL
  9. INSULIN ASPART [Concomitant]
     Active Substance: INSULIN ASPART

REACTIONS (4)
  - Coma [Recovering/Resolving]
  - Anisocoria [Recovering/Resolving]
  - Subdural haematoma [Recovering/Resolving]
  - Loss of consciousness [Recovering/Resolving]

NARRATIVE: CASE EVENT DATE: 20230315
